FAERS Safety Report 4525350-X (Version None)
Quarter: 2004Q4

REPORT INFORMATION
  Report Type: 
  Country: None (occurrence: None)
  Receive Date: 20041213
  Receipt Date: 20041021
  Transmission Date: 20050328
  Serious: Yes (Other)
  Sender: FDA-Public Use
  Company Number: PHNU2004DE03600

PATIENT
  Age: 79 Year
  Sex: Male
  Weight: 84 kg

DRUGS (6)
  1. CIBACEN [Concomitant]
  2. CONCOR [Concomitant]
  3. DIGIMERCK [Concomitant]
  4. UNAT [Concomitant]
  5. ISCOVER [Concomitant]
     Dates: start: 20041007
  6. LOCOL [Suspect]
     Indication: MIXED HYPERLIPIDAEMIA
     Dosage: 80 MG, QD
     Route: 048
     Dates: start: 20041006, end: 20041013

REACTIONS (2)
  - CONDITION AGGRAVATED [None]
  - GAMMA-GLUTAMYLTRANSFERASE INCREASED [None]
